FAERS Safety Report 16433696 (Version 1)
Quarter: 2019Q2

REPORT INFORMATION
  Report Type: Spontaneous
  Country: IT (occurrence: IT)
  Receive Date: 20190614
  Receipt Date: 20190614
  Transmission Date: 20190711
  Serious: Yes (Death, Other)
  Sender: FDA-Public Use
  Company Number: IT-SA-BI2015BI55786BI

PATIENT
  Age: 69 Year
  Sex: Male

DRUGS (3)
  1. ULTRAVIST [Suspect]
     Active Substance: IOPROMIDE
     Indication: PRODUCT USED FOR UNKNOWN INDICATION
     Dosage: UNK UNK,UNK
     Route: 065
  2. CETIRIZINE HYDROCHLORIDE. [Suspect]
     Active Substance: CETIRIZINE HYDROCHLORIDE
     Dosage: UNK UNK,UNK
     Route: 048
  3. ZANTAC [Suspect]
     Active Substance: RANITIDINE HYDROCHLORIDE
     Indication: PRODUCT USED FOR UNKNOWN INDICATION
     Dosage: 300 MG,UNK
     Route: 065

REACTIONS (7)
  - Cardiac arrest [Fatal]
  - Malaise [Fatal]
  - Cardiac fibrillation [Fatal]
  - Anaphylactic shock [Fatal]
  - Loss of consciousness [Fatal]
  - Abdominal pain [Fatal]
  - Dyspnoea [Fatal]
